FAERS Safety Report 23033452 (Version 4)
Quarter: 2024Q4

REPORT INFORMATION
  Report Type: Report from Study
  Country: BE (occurrence: BE)
  Receive Date: 20231005
  Receipt Date: 20241111
  Transmission Date: 20250115
  Serious: Yes (Hospitalization, Other)
  Sender: EXELIXIS
  Company Number: BE-IPSEN Group, Research and Development-2021-03307

PATIENT

DRUGS (15)
  1. CABOZANTINIB [Suspect]
     Active Substance: CABOZANTINIB
     Indication: Renal cell carcinoma
     Dosage: 60 MG, QD
     Route: 048
     Dates: start: 20210118, end: 20210316
  2. CABOZANTINIB [Suspect]
     Active Substance: CABOZANTINIB
     Dosage: 40 MG, QD
     Route: 048
     Dates: start: 20210317, end: 20210330
  3. CABOZANTINIB [Suspect]
     Active Substance: CABOZANTINIB
     Dosage: 20 MG, QD
     Route: 048
     Dates: start: 20210601
  4. LEVETIRACETAM [Concomitant]
     Active Substance: LEVETIRACETAM
     Indication: Epilepsy
     Dosage: 750 MG, TWICE A DAY (ONGOING)
     Route: 048
     Dates: start: 20161207
  5. TAMSULOSIN HYDROCHLORIDE [Concomitant]
     Active Substance: TAMSULOSIN HYDROCHLORIDE
     Indication: Benign prostatic hyperplasia
     Dosage: 0.4 MG, QD
     Route: 048
     Dates: start: 20201216
  6. FOLIC ACID [Concomitant]
     Active Substance: FOLIC ACID
     Indication: Folate deficiency
     Dosage: 1 TABLET, QD
     Route: 048
     Dates: start: 20221221
  7. VITAMIN B12 [Concomitant]
     Active Substance: CYANOCOBALAMIN
     Indication: Vitamin B12 deficiency
     Dosage: 1 TABLET, QD
     Route: 048
     Dates: start: 20221221
  8. ASPIRIN [Concomitant]
     Active Substance: ASPIRIN
     Indication: Transient ischaemic attack
     Dosage: 80 MG, QD
     Route: 048
     Dates: start: 20231205
  9. ACETAMINOPHEN [Concomitant]
     Active Substance: ACETAMINOPHEN
  10. Enterol [Concomitant]
     Indication: Prophylaxis
     Dosage: 250 MG, BID
     Route: 048
     Dates: start: 20230915
  11. CALCIUM CARBONATE [Concomitant]
     Active Substance: CALCIUM CARBONATE
     Indication: Calcium deficiency
     Dosage: 1 G, QD
     Route: 048
     Dates: start: 20210714
  12. CHOLECALCIFEROL [Concomitant]
     Active Substance: CHOLECALCIFEROL
     Indication: Vitamin D deficiency
     Dosage: 1000 [IU], QD
     Route: 048
     Dates: start: 20210714
  13. Befact forte [Concomitant]
     Indication: Prophylaxis
     Dosage: UNK, QD
     Route: 048
     Dates: start: 20221221
  14. CEFTRIAXONE [Concomitant]
     Active Substance: CEFTRIAXONE
     Indication: Pyrexia
     Dosage: 2 G, QD
     Route: 042
     Dates: start: 20240802, end: 20240807
  15. AMOXICILLIN\CLAVULANATE POTASSIUM [Concomitant]
     Active Substance: AMOXICILLIN\CLAVULANATE POTASSIUM
     Indication: Pyrexia
     Dosage: 875 MG, QD
     Route: 048
     Dates: start: 20240806, end: 20240820

REACTIONS (13)
  - Hyperparathyroidism [Unknown]
  - Cataract [Recovered/Resolved]
  - Hyperthyroidism [Unknown]
  - Hypophosphataemia [Not Recovered/Not Resolved]
  - Hypothyroidism [Not Recovered/Not Resolved]
  - Fatigue [Unknown]
  - Abdominal pain upper [Recovered/Resolved]
  - Decreased appetite [Recovered/Resolved]
  - Abdominal pain upper [Recovered/Resolved]
  - Decreased appetite [Recovered/Resolved]
  - Mucosal inflammation [Recovered/Resolved]
  - Rash [Recovered/Resolved]
  - Diarrhoea [Recovered/Resolved]

NARRATIVE: CASE EVENT DATE: 20210121
